FAERS Safety Report 7048952-8 (Version None)
Quarter: 2010Q4

REPORT INFORMATION
  Report Type: 
  Country: None (occurrence: None)
  Receive Date: 20101008
  Receipt Date: 20100930
  Transmission Date: 20110411
  Serious: Yes (Other)
  Sender: FDA-Public Use
  Company Number: AVE_02000_2010

PATIENT
  Sex: Female

DRUGS (1)
  1. CLONIDINE [Suspect]
     Indication: HYPERTENSION
     Dosage: (0.1 MG QD, VIA 1/WEEKLY PATCH TRANSDERMAL)
     Route: 062
     Dates: start: 20090101

REACTIONS (3)
  - APPLICATION SITE PRURITUS [None]
  - BLOOD PRESSURE DECREASED [None]
  - WRONG TECHNIQUE IN DRUG USAGE PROCESS [None]
